FAERS Safety Report 13078758 (Version 1)
Quarter: 2017Q1

REPORT INFORMATION
  Report Type: Spontaneous
  Country: US (occurrence: US)
  Receive Date: 20170102
  Receipt Date: 20170102
  Transmission Date: 20170428
  Serious: Yes (Death)
  Sender: FDA-Public Use
  Company Number: US-TEVA-725451USA

PATIENT
  Age: 25 Year
  Sex: Male

DRUGS (3)
  1. TRAZODONE [Interacting]
     Active Substance: TRAZODONE HYDROCHLORIDE
     Route: 065
  2. SERTRALINE [Suspect]
     Active Substance: SERTRALINE HYDROCHLORIDE
     Route: 065
  3. IMODIUM [Interacting]
     Active Substance: LOPERAMIDE HYDROCHLORIDE
     Route: 065

REACTIONS (4)
  - Drug interaction [Fatal]
  - Toxicity to various agents [Fatal]
  - Drug abuse [Fatal]
  - Accidental overdose [Fatal]
